FAERS Safety Report 7633587-6 (Version None)
Quarter: 2011Q3

REPORT INFORMATION
  Report Type: 
  Country: None (occurrence: None)
  Receive Date: 20110725
  Receipt Date: 20101214
  Transmission Date: 20111222
  Serious: Yes (Death)
  Sender: FDA-Public Use
  Company Number: CA-GLAXOSMITHKLINE-A0899643A

PATIENT
  Sex: Female

DRUGS (3)
  1. XELODA [Concomitant]
     Route: 065
  2. TYKERB [Suspect]
     Indication: BREAST CANCER METASTATIC
     Dosage: 1250MG PER DAY
     Route: 048
     Dates: start: 20101124
  3. EFFEXOR [Concomitant]
     Route: 065

REACTIONS (2)
  - DEATH [None]
  - DIARRHOEA [None]
